FAERS Safety Report 24746326 (Version 1)
Quarter: 2024Q4

REPORT INFORMATION
  Report Type: Spontaneous
  Country: JP (occurrence: None)
  Receive Date: 20241218
  Receipt Date: 20241218
  Transmission Date: 20250115
  Serious: Yes (Hospitalization)
  Sender: ENCUBE ETHICALS
  Company Number: JP-Encube-001465

PATIENT
  Age: 64 Year
  Sex: Female

DRUGS (2)
  1. TRIAMCINOLONE ACETONIDE [Suspect]
     Active Substance: TRIAMCINOLONE ACETONIDE
     Indication: Scar
     Dosage: INJECTION
     Route: 026
  2. TRIAMCINOLONE ACETONIDE [Suspect]
     Active Substance: TRIAMCINOLONE ACETONIDE
     Indication: Stenosis
     Dosage: INJECTION
     Route: 026

REACTIONS (2)
  - Oesophageal ulcer perforation [Recovered/Resolved]
  - Off label use [Unknown]
